FAERS Safety Report 5829770-2 (Version None)
Quarter: 2008Q3

REPORT INFORMATION
  Report Type: 
  Country: None (occurrence: None)
  Receive Date: 20080801
  Receipt Date: 20080724
  Transmission Date: 20090109
  Serious: Yes (Hospitalization)
  Sender: FDA-Public Use
  Company Number: MX-JNJFOC-20080706184

PATIENT
  Age: 65 Year
  Sex: Female

DRUGS (1)
  1. ELEQUINE 750 [Suspect]
     Indication: NAIL INFECTION
     Route: 048
     Dates: start: 20080718, end: 20080718

REACTIONS (1)
  - PHARYNGEAL OEDEMA [None]
